FAERS Safety Report 16064333 (Version 1)
Quarter: 2019Q1

REPORT INFORMATION
  Report Type: Spontaneous
  Country: DE (occurrence: DE)
  Receive Date: 20190312
  Receipt Date: 20190312
  Transmission Date: 20190418
  Serious: Yes (Other)
  Sender: FDA-Public Use
  Company Number: DE-ALSI-201800411

PATIENT
  Age: 30 Year
  Sex: Female

DRUGS (4)
  1. OXYGEN. [Suspect]
     Active Substance: OXYGEN
     Indication: FOETAL GROWTH RESTRICTION
  2. BETAMETHASONE. [Concomitant]
     Active Substance: BETAMETHASONE
  3. AMINO ACIDS [Concomitant]
     Active Substance: AMINO ACIDS
  4. GLUCOSE [Concomitant]
     Active Substance: DEXTROSE

REACTIONS (3)
  - Uterine contractions during pregnancy [Recovered/Resolved]
  - Off label use [Recovered/Resolved]
  - Exposure during pregnancy [Recovered/Resolved]
